FAERS Safety Report 11517049 (Version 1)
Quarter: 2015Q3

REPORT INFORMATION
  Report Type: Spontaneous
  Country: US (occurrence: US)
  Receive Date: 20150917
  Receipt Date: 20150917
  Transmission Date: 20151125
  Serious: Yes (Other)
  Sender: FDA-Public Use
  Company Number: US-DYAX CORP.-2015DX000394

PATIENT
  Age: 45 Year
  Sex: Female
  Weight: 63.56 kg

DRUGS (10)
  1. C1 ESTERASE HUMAN PLASMA [Concomitant]
     Indication: HEREDITARY ANGIOEDEMA
     Route: 042
  2. PREDNISONE. [Concomitant]
     Active Substance: PREDNISONE
     Indication: HEREDITARY ANGIOEDEMA
     Route: 048
  3. EPIPEN [Concomitant]
     Active Substance: EPINEPHRINE
     Indication: ANAPHYLAXIS PROPHYLAXIS
     Route: 065
  4. KALBITOR [Suspect]
     Active Substance: ECALLANTIDE
     Indication: HEREDITARY ANGIOEDEMA
     Route: 058
     Dates: start: 20150831, end: 20150831
  5. KALBITOR [Suspect]
     Active Substance: ECALLANTIDE
     Route: 058
     Dates: start: 2015, end: 2015
  6. KALBITOR [Suspect]
     Active Substance: ECALLANTIDE
     Route: 058
     Dates: start: 201503
  7. ZYRTEC [Concomitant]
     Active Substance: CETIRIZINE HYDROCHLORIDE
     Indication: SEASONAL ALLERGY
     Route: 048
  8. FIRAZYR [Concomitant]
     Active Substance: ICATIBANT ACETATE
     Indication: HEREDITARY ANGIOEDEMA
     Route: 058
  9. DANAZOL. [Concomitant]
     Active Substance: DANAZOL
     Indication: HEREDITARY ANGIOEDEMA
     Route: 048
  10. BENADRYL [Concomitant]
     Active Substance: DIPHENHYDRAMINE HYDROCHLORIDE
     Indication: HEREDITARY ANGIOEDEMA
     Route: 048

REACTIONS (9)
  - Anaphylactic reaction [Recovered/Resolved with Sequelae]
  - Hyperhidrosis [Unknown]
  - Fatigue [Not Recovered/Not Resolved]
  - Bowel movement irregularity [Unknown]
  - Feeling abnormal [Unknown]
  - Hereditary angioedema [Unknown]
  - Dyspnoea exertional [Unknown]
  - Somnolence [Unknown]
  - Throat irritation [Not Recovered/Not Resolved]

NARRATIVE: CASE EVENT DATE: 2015
